FAERS Safety Report 10020586 (Version 1)
Quarter: 2014Q1

REPORT INFORMATION
  Report Type: Spontaneous
  Country: AR (occurrence: AR)
  Receive Date: 20140319
  Receipt Date: 20140319
  Transmission Date: 20141002
  Serious: Yes (Other)
  Sender: FDA-Public Use
  Company Number: 2013SP008633

PATIENT
  Age: 52 Year
  Sex: Female

DRUGS (7)
  1. METHOTREXATE [Suspect]
     Indication: RHEUMATOID ARTHRITIS
     Dates: end: 201308
  2. METHOTREXATE [Suspect]
     Indication: RHEUMATOID ARTHRITIS
     Dates: start: 201312
  3. ENBREL [Suspect]
     Indication: RHEUMATOID ARTHRITIS
     Dates: start: 20130507, end: 201308
  4. ENBREL [Suspect]
     Indication: RHEUMATOID ARTHRITIS
     Dates: start: 201312
  5. DBI [Concomitant]
  6. IBUPROFENE [Concomitant]
  7. INSULIN [Concomitant]

REACTIONS (6)
  - Rheumatoid arthritis [Recovering/Resolving]
  - Gait disturbance [Not Recovered/Not Resolved]
  - Pain [Recovering/Resolving]
  - Cyst [Not Recovered/Not Resolved]
  - Anxiety [Not Recovered/Not Resolved]
  - Pyrexia [Not Recovered/Not Resolved]
